FAERS Safety Report 4885413-6 (Version None)
Quarter: 2005Q4

REPORT INFORMATION
  Report Type: 
  Country: None (occurrence: None)
  Receive Date: 20051222
  Receipt Date: 20050915
  Transmission Date: 20060501
  Serious: Yes (Other)
  Sender: FDA-Public Use
  Company Number: PHEH2005US10348

PATIENT

DRUGS (1)
  1. FOCALIN XR [Suspect]
     Dosage: 10 MG, QD, ORAL
     Route: 048

REACTIONS (1)
  - DEPRESSED MOOD [None]
